FAERS Safety Report 5829422-9 (Version None)
Quarter: 2008Q3

REPORT INFORMATION
  Report Type: 
  Country: None (occurrence: None)
  Receive Date: 20080731
  Receipt Date: 20080722
  Transmission Date: 20090109
  Serious: No
  Sender: FDA-Public Use
  Company Number: FR-PFIZER INC-2008002834

PATIENT
  Sex: Male

DRUGS (5)
  1. TAHOR [Suspect]
     Route: 048
  2. OLMESARTAN MEDOXOMIL [Suspect]
     Indication: HYPERTENSION
     Route: 048
  3. ALDALIX [Suspect]
     Dosage: TEXT:50MG/20MG-FREQ:DAILY
     Route: 048
  4. DILTIAZEM HCL [Suspect]
     Route: 048
  5. HYPERIUM [Suspect]
     Indication: HYPERTENSION
     Route: 048

REACTIONS (1)
  - NO ADVERSE EVENT [None]
